FAERS Safety Report 5064168-9 (Version None)
Quarter: 2006Q3

REPORT INFORMATION
  Report Type: 
  Country: None (occurrence: None)
  Receive Date: 20060728
  Receipt Date: 20060130
  Transmission Date: 20061208
  Serious: No
  Sender: FDA-Public Use
  Company Number: US-GLAXOSMITHKLINE-A0591488A

PATIENT
  Age: 10 Year
  Sex: Female

DRUGS (4)
  1. ZANTAC [Suspect]
     Dosage: 4CC TWICE PER DAY
     Route: 048
  2. ZYRTEC [Suspect]
     Indication: DRUG USE FOR UNKNOWN INDICATION
     Route: 065
  3. PREVACID [Concomitant]
  4. ANTIBIOTICS [Concomitant]

REACTIONS (7)
  - ASPIRATION [None]
  - BRONCHITIS [None]
  - HEADACHE [None]
  - ILL-DEFINED DISORDER [None]
  - MEDICATION ERROR [None]
  - PHARMACEUTICAL PRODUCT COMPLAINT [None]
  - POLLAKIURIA [None]
